FAERS Safety Report 7938263-8 (Version None)
Quarter: 2011Q4

REPORT INFORMATION
  Report Type: 
  Country: None (occurrence: None)
  Receive Date: 20111123
  Receipt Date: 20111116
  Transmission Date: 20120403
  Serious: Yes (Hospitalization)
  Sender: FDA-Public Use
  Company Number: IT-B.I. PHARMACEUTICALS,INC./RIDGEFIELD-2011-IT-00291IT

PATIENT
  Sex: Male

DRUGS (5)
  1. ZOLPIDEM TARTRATE [Suspect]
     Indication: INSOMNIA
     Dosage: 10 MG
     Route: 048
     Dates: start: 20110201, end: 20111024
  2. PRAMIPEXOLE DIHYDROCHLORIDE [Suspect]
     Dosage: 0.52 MG
     Route: 048
     Dates: start: 20111018, end: 20111024
  3. PRAMIPEXOLE DIHYDROCHLORIDE [Suspect]
     Indication: PARKINSONISM
     Dosage: 2.1 MG
     Route: 048
     Dates: start: 20111018, end: 20111024
  4. SIRIO [Suspect]
     Indication: PARKINSONISM
     Dosage: STRENGHT: 12.5 MG + 125 MG
     Route: 048
     Dates: start: 20110201, end: 20111024
  5. CITALOPRAM HYDROBROMIDE [Suspect]
     Indication: ANXIETY
     Dosage: 20 MG
     Route: 048
     Dates: start: 20110201, end: 20111024

REACTIONS (5)
  - AGITATION [None]
  - CONFUSIONAL STATE [None]
  - HYPOTONIA [None]
  - SLEEP DISORDER [None]
  - HALLUCINATION [None]
